FAERS Safety Report 10727699 (Version 1)
Quarter: 2015Q1

REPORT INFORMATION
  Report Type: Spontaneous
  Country: US (occurrence: US)
  Receive Date: 20150121
  Receipt Date: 20150121
  Transmission Date: 20150721
  Serious: Yes (Other)
  Sender: FDA-Public Use
  Company Number: US-RECKITT BENCKISER PHARMACEUTICAL, INC-RB-074884-2015

PATIENT
  Age: 15 Year
  Sex: Male

DRUGS (1)
  1. SUBOXONE [Suspect]
     Active Substance: BUPRENORPHINE HYDROCHLORIDE\NALOXONE HYDROCHLORIDE
     Indication: SUBSTANCE USE
     Dosage: TOOK 2 OR 3 TABLETS ONCE
     Route: 060
     Dates: start: 20150111, end: 20150111

REACTIONS (3)
  - Somnolence [Not Recovered/Not Resolved]
  - Substance abuse [Recovered/Resolved]
  - Soliloquy [Recovered/Resolved]

NARRATIVE: CASE EVENT DATE: 20150111
